FAERS Safety Report 4617497-4 (Version None)
Quarter: 2005Q1

REPORT INFORMATION
  Report Type: 
  Country: None (occurrence: None)
  Receive Date: 20050324
  Receipt Date: 20050311
  Transmission Date: 20050727
  Serious: Yes (Hospitalization)
  Sender: FDA-Public Use
  Company Number: 200510962FR

PATIENT
  Age: 82 Year
  Sex: Female

DRUGS (4)
  1. LOVENOX [Suspect]
     Route: 058
     Dates: start: 20050127, end: 20050209
  2. DALACINE [Suspect]
     Route: 042
     Dates: start: 20050127
  3. ACUPAN [Concomitant]
     Route: 042
     Dates: start: 20050127
  4. PARACETAMOL [Concomitant]

REACTIONS (5)
  - DERMATITIS BULLOUS [None]
  - ERYTHEMA MULTIFORME [None]
  - RASH [None]
  - THERAPY NON-RESPONDER [None]
  - URTICARIA [None]
